FAERS Safety Report 8016656-0 (Version None)
Quarter: 2012Q1

REPORT INFORMATION
  Report Type: 
  Country: None (occurrence: None)
  Receive Date: 20120102
  Receipt Date: 20111223
  Transmission Date: 20120608
  Serious: Yes (Hospitalization)
  Sender: FDA-Public Use
  Company Number: BR-BRISTOL-MYERS SQUIBB COMPANY-16275158

PATIENT
  Age: 46 Year
  Sex: Male

DRUGS (3)
  1. BELATACEPT [Suspect]
     Indication: RENAL TRANSPLANT
     Route: 042
     Dates: start: 20060709, end: 20111021
  2. AZATHIOPRINE [Concomitant]
     Dates: start: 20101111, end: 20111221
  3. PREDNISONE [Suspect]
     Indication: RENAL TRANSPLANT
     Dosage: 12JUL11
     Dates: start: 20060712

REACTIONS (1)
  - PNEUMOCYSTIS JIROVECI PNEUMONIA [None]
